FAERS Safety Report 7584724-3 (Version None)
Quarter: 2011Q2

REPORT INFORMATION
  Report Type: 
  Country: None (occurrence: None)
  Receive Date: 20110630
  Receipt Date: 20110617
  Transmission Date: 20111010
  Serious: Yes (Disabling)
  Sender: FDA-Public Use
  Company Number: PHHY2011FR13134

PATIENT
  Sex: Female
  Weight: 73 kg

DRUGS (9)
  1. PREVISCAN [Concomitant]
     Indication: ARRHYTHMIA
  2. NITRODERM [Concomitant]
     Indication: ABDOMINAL PAIN UPPER
  3. OMEPRAZOLE [Concomitant]
     Indication: ABDOMINAL PAIN UPPER
  4. LAMALINE [Concomitant]
     Indication: CORONARY ARTERY DISEASE
  5. RIVASTIGMINE [Suspect]
     Indication: DEMENTIA ALZHEIMER'S TYPE
     Dosage: 4.6 MG, QD
     Route: 062
     Dates: start: 20100701, end: 20100706
  6. FUROSEMIDE [Concomitant]
  7. FUMAFER [Concomitant]
     Indication: IRON DEFICIENCY
     Dosage: UNK UKN, UNK
  8. STABLON [Concomitant]
     Indication: DEPRESSION
     Dosage: UNK UKN, UNK
  9. HEMIGOXINE [Concomitant]

REACTIONS (2)
  - AGITATION [None]
  - AGGRESSION [None]
